FAERS Safety Report 4871131-7 (Version None)
Quarter: 2005Q4

REPORT INFORMATION
  Report Type: 
  Country: None (occurrence: None)
  Receive Date: 20051229
  Receipt Date: 20051221
  Transmission Date: 20060501
  Serious: Yes (Other)
  Sender: FDA-Public Use
  Company Number: AT200512000470

PATIENT
  Age: 47 Year
  Sex: Female

DRUGS (1)
  1. EVISTA [Suspect]
     Dosage: 60 MG
     Dates: start: 20050622, end: 20050926

REACTIONS (2)
  - HEARING IMPAIRED [None]
  - INNER EAR DISORDER [None]
